FAERS Safety Report 17680859 (Version 4)
Quarter: 2021Q2

REPORT INFORMATION
  Report Type: Report from Study
  Country: US (occurrence: US)
  Receive Date: 20200417
  Receipt Date: 20210416
  Transmission Date: 20210716
  Serious: No
  Sender: FDA-Public Use
  Company Number: US-AGIOS-2004US01804

PATIENT

DRUGS (3)
  1. TIBSOVO [Suspect]
     Active Substance: IVOSIDENIB
     Indication: ACUTE MYELOID LEUKAEMIA
     Dosage: 250 MILLIGRAM, QD
     Route: 048
     Dates: start: 20190528
  2. MELOXICAM. [Concomitant]
     Active Substance: MELOXICAM
     Indication: ARTHRALGIA
     Dosage: 15 MILLIGRAM
  3. TIBSOVO [Suspect]
     Active Substance: IVOSIDENIB
     Dosage: 250 MILLIGRAM, QD
     Route: 048
     Dates: start: 201905

REACTIONS (8)
  - Visual acuity reduced [Unknown]
  - Haemoglobin decreased [Unknown]
  - Fatigue [Unknown]
  - Drug ineffective [Unknown]
  - Arthralgia [Unknown]
  - Blood pressure increased [Unknown]
  - Off label use [Not Recovered/Not Resolved]
  - Emotional disorder [Unknown]

NARRATIVE: CASE EVENT DATE: 20190528
